FAERS Safety Report 6669822-0 (Version None)
Quarter: 2010Q2

REPORT INFORMATION
  Report Type: 
  Country: None (occurrence: None)
  Receive Date: 20100406
  Receipt Date: 20100111
  Transmission Date: 20101027
  Serious: No
  Sender: FDA-Public Use
  Company Number: US-ALLERGAN-0905504US

PATIENT
  Age: 54 Year
  Sex: Female

DRUGS (3)
  1. LATISSE [Suspect]
     Indication: DRUG USE FOR UNKNOWN INDICATION
     Dosage: UNK, QHS
     Route: 061
     Dates: start: 20090325, end: 20090420
  2. ESTROGEN [Concomitant]
     Indication: HORMONE REPLACEMENT THERAPY
  3. TESTOSTERONE [Concomitant]
     Indication: HORMONE REPLACEMENT THERAPY

REACTIONS (1)
  - MADAROSIS [None]
